FAERS Safety Report 6657881-0 (Version None)
Quarter: 2010Q1

REPORT INFORMATION
  Report Type: 
  Country: None (occurrence: None)
  Receive Date: 20100330
  Receipt Date: 20100322
  Transmission Date: 20100710
  Serious: Yes (Death, Other)
  Sender: FDA-Public Use
  Company Number: AT-ROCHE-692309

PATIENT
  Age: 68 Year
  Sex: Male

DRUGS (3)
  1. MYCOPHENOLATE MOFETIL [Suspect]
     Route: 065
  2. TACROLIMUS [Suspect]
     Route: 065
  3. PREDNISOLONE [Suspect]
     Route: 065

REACTIONS (4)
  - ASPERGILLOMA [None]
  - BRONCHOPULMONARY ASPERGILLOSIS [None]
  - CARDIOPULMONARY FAILURE [None]
  - SEPSIS [None]
